FAERS Safety Report 23835831 (Version 1)
Quarter: 2024Q2

REPORT INFORMATION
  Report Type: Spontaneous
  Country: US (occurrence: None)
  Receive Date: 20240507
  Receipt Date: 20240507
  Transmission Date: 20240716
  Serious: Yes (Hospitalization)
  Sender: FDA-Public Use
  Company Number: None

PATIENT
  Age: 60 Year
  Sex: Female

DRUGS (1)
  1. TYMLOS [Suspect]
     Active Substance: ABALOPARATIDE
     Indication: Senile osteoporosis
     Dosage: FREQUENCY : DAILY;?
     Route: 058

REACTIONS (5)
  - Seizure [None]
  - Intestinal resection [None]
  - Post procedural complication [None]
  - Gastric bypass [None]
  - Abdominal hernia [None]

NARRATIVE: CASE EVENT DATE: 20230602
